FAERS Safety Report 4796973-8 (Version None)
Quarter: 2005Q4

REPORT INFORMATION
  Report Type: 
  Country: None (occurrence: None)
  Receive Date: 20051011
  Receipt Date: 20051011
  Transmission Date: 20060501
  Serious: No
  Sender: FDA-Public Use
  Company Number: None

PATIENT
  Age: 77 Year
  Sex: Female
  Weight: 72.5755 kg

DRUGS (1)
  1. TOBRAMYCIN [Suspect]
     Indication: CORNEAL ABRASION
     Dosage: EYE DROPS
     Dates: start: 20050730, end: 20050731

REACTIONS (4)
  - ERYTHEMA [None]
  - LOCAL SWELLING [None]
  - PRURITUS [None]
  - SWELLING FACE [None]
